FAERS Safety Report 25273031 (Version 1)
Quarter: 2025Q2

REPORT INFORMATION
  Report Type: Report from Study
  Country: US (occurrence: US)
  Receive Date: 20250506
  Receipt Date: 20250506
  Transmission Date: 20250716
  Serious: No
  Sender: ACADIA PHARMACEUTICALS
  Company Number: US-ACADIA PHARMACEUTICALS INC.-ACA-2025-PIM-005010

PATIENT
  Age: 78 Year
  Sex: Female

DRUGS (5)
  1. NUPLAZID [Suspect]
     Active Substance: PIMAVANSERIN TARTRATE
     Indication: Parkinson^s disease
     Dosage: 34 MILLIGRAM, QD
     Route: 048
     Dates: start: 20250312, end: 20250404
  2. LEVOTHYROXINE [Concomitant]
     Active Substance: LEVOTHYROXINE
  3. QUETIAPINE [Concomitant]
     Active Substance: QUETIAPINE
  4. DONEPEZIL [Concomitant]
     Active Substance: DONEPEZIL
  5. MEMANTINE [Concomitant]
     Active Substance: MEMANTINE

REACTIONS (2)
  - Feeling abnormal [Recovered/Resolved]
  - Confusional state [Recovered/Resolved]
